FAERS Safety Report 12190385 (Version 5)
Quarter: 2016Q3

REPORT INFORMATION
  Report Type: Report from Study
  Country: US (occurrence: US)
  Receive Date: 20160318
  Receipt Date: 20160809
  Transmission Date: 20161109
  Serious: No
  Sender: FDA-Public Use
  Company Number: US-AMGEN-USASL2016030449

PATIENT
  Age: 48 Year
  Sex: Female
  Weight: 88.44 kg

DRUGS (1)
  1. ENBREL [Suspect]
     Active Substance: ETANERCEPT
     Indication: RHEUMATOID ARTHRITIS
     Dosage: 50 MG, ONCE WEEKLY
     Route: 058
     Dates: start: 201602

REACTIONS (18)
  - Injection site pain [Recovered/Resolved]
  - Injection site induration [Unknown]
  - Erythema [Recovered/Resolved]
  - Hepatic enzyme increased [Unknown]
  - Pruritus [Recovered/Resolved]
  - Skin induration [Recovered/Resolved]
  - Injection site mass [Unknown]
  - Head discomfort [Unknown]
  - Swelling [Not Recovered/Not Resolved]
  - Drug ineffective [Unknown]
  - Contusion [Unknown]
  - Sinusitis [Unknown]
  - Injection site swelling [Recovering/Resolving]
  - Injection site bruising [Unknown]
  - Injection site erythema [Unknown]
  - Injection site reaction [Recovering/Resolving]
  - Injection site warmth [Unknown]
  - Injection site rash [Unknown]

NARRATIVE: CASE EVENT DATE: 2016
